FAERS Safety Report 8306463-3 (Version None)
Quarter: 2012Q2

REPORT INFORMATION
  Report Type: 
  Country: None (occurrence: None)
  Receive Date: 20120424
  Receipt Date: 20120413
  Transmission Date: 20120825
  Serious: Yes (Hospitalization)
  Sender: FDA-Public Use
  Company Number: JP-BRISTOL-MYERS SQUIBB COMPANY-15618747

PATIENT
  Age: 71 Year
  Sex: Male
  Weight: 92 kg

DRUGS (10)
  1. ABILIFY [Suspect]
     Indication: SCHIZOPHRENIA
     Dosage: 1DEC10 1ST TREATMENT 12JAN11 2ND TREATMENT
     Route: 048
     Dates: start: 20101202, end: 20110310
  2. TASMOLIN [Concomitant]
     Dates: end: 20110310
  3. MAGNESIUM SULFATE [Concomitant]
  4. PLACEBO [Suspect]
     Indication: SCHIZOPHRENIA
     Dosage: 9FEB11 3RD TREATMENT
     Dates: start: 20110209, end: 20110309
  5. AMLODIPINE [Concomitant]
     Dosage: AMLODIN OD
     Dates: end: 20110324
  6. DEPAS [Concomitant]
  7. GASMOTIN [Concomitant]
  8. SENNOSIDE [Concomitant]
     Dates: end: 20110416
  9. ARIPIPRAZOLE [Suspect]
     Indication: SCHIZOPHRENIA
     Dosage: 9FEB11 3RD TREATMENT
     Route: 065
     Dates: start: 20110209, end: 20110309
  10. MICARDIS [Concomitant]
     Dates: end: 20110324

REACTIONS (1)
  - SCHIZOPHRENIA [None]
